FAERS Safety Report 8513381-4 (Version None)
Quarter: 2012Q3

REPORT INFORMATION
  Report Type: 
  Country: None (occurrence: None)
  Receive Date: 20120717
  Receipt Date: 20120711
  Transmission Date: 20120928
  Serious: Yes (Death)
  Sender: FDA-Public Use
  Company Number: US-AMGEN-USASP2012039385

PATIENT
  Age: 60 Year
  Sex: Male

DRUGS (2)
  1. ANTINEOPLASTIC AGENTS [Concomitant]
     Indication: METASTATIC NEOPLASM
  2. NEUPOGEN [Suspect]
     Indication: CHEMOTHERAPY

REACTIONS (1)
  - METASTATIC NEOPLASM [None]
